FAERS Safety Report 9717043 (Version 2)
Quarter: 2013Q4

REPORT INFORMATION
  Report Type: Spontaneous
  Country: US (occurrence: US)
  Receive Date: 20131127
  Receipt Date: 20131127
  Transmission Date: 20140711
  Serious: No
  Sender: FDA-Public Use
  Company Number: US-GILEAD-2009-0020335

PATIENT
  Sex: Female

DRUGS (10)
  1. LETAIRIS [Suspect]
     Indication: PULMONARY ARTERIAL HYPERTENSION
     Route: 048
     Dates: start: 20081014, end: 20090119
  2. FUROSEMIDE [Concomitant]
  3. DIOVAN [Concomitant]
  4. ISOSORBIDE [Concomitant]
  5. DIGOXIN [Concomitant]
  6. METOPROLOL [Concomitant]
  7. SIMVASTATIN [Concomitant]
  8. LEVOTHYROXINE [Concomitant]
  9. GLIPIZIDE [Concomitant]
  10. ALLOPURINOL [Concomitant]

REACTIONS (6)
  - Insomnia [Recovered/Resolved]
  - Sinus congestion [Recovered/Resolved]
  - Nasal congestion [Recovered/Resolved]
  - Palpitations [Recovered/Resolved]
  - Dyspnoea [Unknown]
  - Local swelling [Unknown]
